FAERS Safety Report 8949607 (Version 1)
Quarter: 2012Q4

REPORT INFORMATION
  Report Type: Report from Study
  Country: FR (occurrence: FR)
  Receive Date: 20121206
  Receipt Date: 20121206
  Transmission Date: 20130627
  Serious: Yes (Hospitalization, Other)
  Sender: FDA-Public Use
  Company Number: FR-GENZYME-CLOF-1002056

PATIENT
  Age: 71 Year
  Sex: Male
  Weight: 91 kg

DRUGS (11)
  1. EVOLTRA [Suspect]
     Indication: MYELODYSPLASTIC SYNDROME
     Dosage: 20 mg/2 days (1st course)
     Route: 042
     Dates: start: 20120131, end: 20120209
  2. EVOLTRA [Suspect]
     Dosage: UNK  (2nd course)
     Route: 065
     Dates: start: 20120326
  3. ZOFEN [Concomitant]
     Indication: PRODUCT USED FOR UNKNOWN INDICATION
     Dosage: 8 mg, qd
     Route: 042
     Dates: start: 20120127
  4. TAVANIC [Concomitant]
     Indication: PROPHYLAXIS
     Dosage: 500 UNK, qd
     Route: 048
     Dates: start: 20120131, end: 20120207
  5. NOXAFIL [Concomitant]
     Indication: PROPHYLAXIS
     Dosage: 600 UNK, qd
     Route: 048
     Dates: start: 20120205
  6. ATARAX [Concomitant]
     Indication: PRODUCT USED FOR UNKNOWN INDICATION
     Dosage: 25 mg, qd
     Route: 048
     Dates: start: 20120127
  7. LOXEN [Concomitant]
     Indication: HYPERTENSION
     Dosage: 100 mg, qd
     Route: 048
     Dates: start: 20120128
  8. TAHOR [Concomitant]
     Indication: HYPERCHOLESTEROLAEMIA
     Dosage: 40 mg, qd
     Route: 048
     Dates: start: 20120128
  9. AMIFLAMINE [Concomitant]
     Indication: PRODUCT USED FOR UNKNOWN INDICATION
     Dosage: 750 mg, bid
     Route: 042
     Dates: start: 20120207
  10. TAUROSELCHOLIC ACID [Concomitant]
     Indication: PRODUCT USED FOR UNKNOWN INDICATION
     Dosage: 400 mg, bid
     Route: 042
     Dates: start: 20120207
  11. LEXOMIL [Concomitant]
     Indication: ANXIETY
     Dosage: 1 cp, qd
     Route: 048
     Dates: start: 20120127

REACTIONS (18)
  - Arthritis bacterial [Recovered/Resolved]
  - Staphylococcal infection [Unknown]
  - Disease progression [Unknown]
  - Pleural fibrosis [Unknown]
  - Lung neoplasm [Unknown]
  - Aortic valve incompetence [Unknown]
  - Mitral valve incompetence [Unknown]
  - Purpura [Unknown]
  - Sepsis [Recovered/Resolved]
  - Febrile neutropenia [Recovered/Resolved]
  - Protein total increased [Unknown]
  - Blood fibrinogen increased [Unknown]
  - Platelet count decreased [Unknown]
  - Skin mass [Unknown]
  - Blood lactate dehydrogenase increased [Unknown]
  - Epistaxis [Unknown]
  - Endocarditis [Recovered/Resolved]
  - Febrile neutropenia [Recovered/Resolved]
